FAERS Safety Report 9520079 (Version 2)
Quarter: 2013Q3

REPORT INFORMATION
  Report Type: Spontaneous
  Country: US (occurrence: US)
  Receive Date: 20130912
  Receipt Date: 20130912
  Transmission Date: 20140515
  Serious: Yes (Other)
  Sender: FDA-Public Use
  Company Number: PHEH2013US002097

PATIENT
  Sex: Male

DRUGS (4)
  1. EXELON PATCH [Suspect]
     Indication: DEMENTIA ALZHEIMER^S TYPE
     Dosage: 9.5 MG, DAILY
     Route: 062
     Dates: start: 201204
  2. EXELON PATCH [Suspect]
     Dosage: 13.3 MG DAILY
     Route: 062
  3. VITAMIN B [Concomitant]
     Dosage: UNK UKN, UNK
  4. ACIFOL//FOLIC ACID [Concomitant]
     Dosage: UNK UKN, UNK

REACTIONS (9)
  - Pancreatitis [Unknown]
  - Palpitations [Unknown]
  - Confusional state [Unknown]
  - Restlessness [Unknown]
  - Abdominal pain upper [Unknown]
  - Agitation [Unknown]
  - Malaise [Unknown]
  - Vomiting [Unknown]
  - Drug administration error [Unknown]
